FAERS Safety Report 12802578 (Version 1)
Quarter: 2016Q3

REPORT INFORMATION
  Report Type: Spontaneous
  Country: US (occurrence: US)
  Receive Date: 20160930
  Receipt Date: 20160930
  Transmission Date: 20161109
  Serious: Yes (Other)
  Sender: FDA-Public Use
  Company Number: None

PATIENT
  Age: 55 Year
  Sex: Female
  Weight: 95.85 kg

DRUGS (14)
  1. DICYCLOMINE [Concomitant]
     Active Substance: DICYCLOMINE HYDROCHLORIDE
  2. OMEPRAZOLE. [Concomitant]
     Active Substance: OMEPRAZOLE
  3. DOCUSATE SODIUM. [Concomitant]
     Active Substance: DOCUSATE SODIUM
  4. ALLERGY PILLS [Concomitant]
     Active Substance: UNSPECIFIED INGREDIENT
  5. AMITIZA [Suspect]
     Active Substance: LUBIPROSTONE
     Indication: CONSTIPATION
     Dosage: OTHER TWICE A DAY ORAL
     Route: 048
     Dates: start: 20160907, end: 20160916
  6. MORPHINE [Concomitant]
     Active Substance: MORPHINE
  7. OXYCODONE [Concomitant]
     Active Substance: OXYCODONE
  8. MIRALAX [Concomitant]
     Active Substance: POLYETHYLENE GLYCOL 3350
  9. TUMS [Concomitant]
     Active Substance: CALCIUM CARBONATE
  10. MELOXICAM. [Concomitant]
     Active Substance: MELOXICAM
  11. CLONIDINE. [Concomitant]
     Active Substance: CLONIDINE
  12. AMITIZA [Suspect]
     Active Substance: LUBIPROSTONE
     Indication: IRRITABLE BOWEL SYNDROME
     Dosage: OTHER TWICE A DAY ORAL
     Route: 048
     Dates: start: 20160907, end: 20160916
  13. LEVOTHYROXINE. [Concomitant]
     Active Substance: LEVOTHYROXINE
  14. ALPRAZOLAM. [Concomitant]
     Active Substance: ALPRAZOLAM

REACTIONS (3)
  - Abdominal pain [None]
  - Blood urine present [None]
  - Renal pain [None]

NARRATIVE: CASE EVENT DATE: 20160916
